FAERS Safety Report 6712238-9 (Version None)
Quarter: 2010Q2

REPORT INFORMATION
  Report Type: 
  Country: None (occurrence: None)
  Receive Date: 20100505
  Receipt Date: 20100501
  Transmission Date: 20101027
  Serious: Yes (Other)
  Sender: FDA-Public Use
  Company Number: US-PFIZER INC-2008094913

PATIENT
  Sex: Female
  Weight: 120.64 kg

DRUGS (9)
  1. CELECOXIB [Suspect]
     Indication: OSTEOARTHRITIS
     Dosage: 200 MG, 1X/DAY, DAILY
     Route: 048
     Dates: start: 20080617, end: 20081014
  2. PROPRANOLOL [Concomitant]
     Dosage: UNK
     Route: 048
     Dates: start: 19820101
  3. HYDROCHLOROTHIAZIDE [Concomitant]
     Dosage: UNK
     Route: 048
     Dates: start: 19820101
  4. FOSINOPRIL [Concomitant]
     Dosage: UNK
     Route: 048
     Dates: start: 20060101
  5. METFORMIN HYDROCHLORIDE [Concomitant]
     Dosage: UNK
     Route: 048
     Dates: start: 20010319
  6. PROVERA [Concomitant]
     Dosage: UNK
     Route: 048
     Dates: start: 20060101
  7. METAMUCIL-2 [Concomitant]
     Dosage: UNK
     Route: 048
     Dates: start: 20080813
  8. ACTOS [Concomitant]
     Dosage: UNK
     Route: 048
     Dates: start: 20040706
  9. LIPITOR [Concomitant]
     Dosage: UNK
     Route: 048
     Dates: start: 19980101

REACTIONS (2)
  - BASAL CELL CARCINOMA [None]
  - SQUAMOUS CELL CARCINOMA [None]
